FAERS Safety Report 8370553-X (Version None)
Quarter: 2012Q2

REPORT INFORMATION
  Report Type: 
  Country: None (occurrence: None)
  Receive Date: 20120517
  Receipt Date: 20120504
  Transmission Date: 20120825
  Serious: Yes (Other)
  Sender: FDA-Public Use
  Company Number: JPI-P-021103

PATIENT
  Age: 47 Year
  Sex: Female
  Weight: 72.5755 kg

DRUGS (16)
  1. ETHINYL ETRADIOL W/NORETHINDRONE ACETATE [Concomitant]
  2. ZOLPIDEM (EDLUAR) [Concomitant]
  3. NABILONE [Concomitant]
  4. PITAVASTATIN [Concomitant]
  5. XYREM [Suspect]
     Indication: CATAPLEXY
     Dosage: ORAL ; 7.5 GM (3.75 GM,2 IN 1 D),ORAL
     Route: 048
     Dates: start: 20110101
  6. XYREM [Suspect]
     Indication: SOMNOLENCE
     Dosage: ORAL ; 7.5 GM (3.75 GM,2 IN 1 D),ORAL
     Route: 048
     Dates: start: 20110101
  7. XYREM [Suspect]
     Indication: CATAPLEXY
     Dosage: ORAL ; 7.5 GM (3.75 GM,2 IN 1 D),ORAL
     Route: 048
     Dates: end: 20120503
  8. XYREM [Suspect]
     Indication: SOMNOLENCE
     Dosage: ORAL ; 7.5 GM (3.75 GM,2 IN 1 D),ORAL
     Route: 048
     Dates: end: 20120503
  9. LEVOTHYROXINE SODIUM [Concomitant]
  10. RANITIDINE HCL [Concomitant]
  11. FEXOFENADINE [Concomitant]
  12. TIZANIDINE [Concomitant]
  13. AN UNKNOWN MEDICATION [Concomitant]
  14. ACETAMINOPHEN W/BUTALBITAL (PHRENALIN) [Concomitant]
  15. EZETIMIBE [Concomitant]
  16. POLYETHYLENE GLYCOL [Concomitant]

REACTIONS (5)
  - IMPAIRED GASTRIC EMPTYING [None]
  - WEIGHT DECREASED [None]
  - GASTROOESOPHAGEAL REFLUX DISEASE [None]
  - BARRETT'S OESOPHAGUS [None]
  - DIARRHOEA [None]
